FAERS Safety Report 10506713 (Version 1)
Quarter: 2014Q3

REPORT INFORMATION
  Report Type: Spontaneous
  Country: US (occurrence: None)
  Receive Date: 20140915
  Receipt Date: 20140915
  Transmission Date: 20150326
  Serious: Yes (Other)
  Sender: FDA-Public Use
  Company Number: 2013-US-003699

PATIENT
  Age: 55 Year
  Sex: Female

DRUGS (1)
  1. XYREM [Suspect]
     Active Substance: SODIUM OXYBATE
     Indication: FIBROMYALGIA
     Route: 048
     Dates: start: 201311, end: 201311

REACTIONS (6)
  - Insomnia [None]
  - Hyperhidrosis [None]
  - Feeling cold [None]
  - Blood pressure increased [None]
  - Skin odour abnormal [None]
  - Off label use [None]

NARRATIVE: CASE EVENT DATE: 201311
